FAERS Safety Report 4947909-8 (Version None)
Quarter: 2006Q1

REPORT INFORMATION
  Report Type: 
  Country: None (occurrence: None)
  Receive Date: 20060317
  Receipt Date: 20060317
  Transmission Date: 20060701
  Serious: Yes (Hospitalization)
  Sender: FDA-Public Use
  Company Number: None

PATIENT
  Sex: Female
  Weight: 70.3075 kg

DRUGS (1)
  1. CAFERGOT [Suspect]
     Indication: MIGRAINE
     Dosage: 10 MG 1Q 30 MIN PO
     Route: 048

REACTIONS (4)
  - ANGIOGRAM ABNORMAL [None]
  - PERIPHERAL COLDNESS [None]
  - PULSE ABSENT [None]
  - VASCULAR OCCLUSION [None]
